FAERS Safety Report 8438664-8 (Version None)
Quarter: 2012Q2

REPORT INFORMATION
  Report Type: 
  Country: None (occurrence: None)
  Receive Date: 20120615
  Receipt Date: 20120608
  Transmission Date: 20120825
  Serious: Yes (Other)
  Sender: FDA-Public Use
  Company Number: US-PFIZER INC-2009314327

PATIENT
  Sex: Female

DRUGS (5)
  1. DILANTIN [Suspect]
     Dosage: UNK
     Route: 048
     Dates: end: 20080730
  2. DILANTIN [Suspect]
     Dosage: 800 MG PER DAY
     Dates: start: 20070927
  3. DILANTIN [Suspect]
     Dosage: 100 MG, THREE TABLETS THRICE DAILY
     Dates: start: 20010723
  4. DILANTIN [Suspect]
     Dosage: 100 MG, FOUR TABLETS TWICE DAILY
     Route: 048
     Dates: start: 20080724
  5. DILANTIN [Suspect]
     Indication: CONVULSION
     Dosage: 500 MG, UNK
     Route: 042

REACTIONS (1)
  - STEVENS-JOHNSON SYNDROME [None]
